FAERS Safety Report 7898607-2 (Version None)
Quarter: 2011Q4

REPORT INFORMATION
  Report Type: 
  Country: None (occurrence: None)
  Receive Date: 20111107
  Receipt Date: 20111107
  Transmission Date: 20120403
  Serious: No
  Sender: FDA-Public Use
  Company Number: None

PATIENT
  Age: 58 Year
  Sex: Female
  Weight: 54.431 kg

DRUGS (1)
  1. ALENDRONATE SODIUM [Suspect]
     Indication: OSTEOPOROSIS
     Dosage: L TABLET
     Route: 048
     Dates: start: 20110131, end: 20111031

REACTIONS (2)
  - PRODUCT SOLUBILITY ABNORMAL [None]
  - PRODUCT QUALITY ISSUE [None]
